FAERS Safety Report 16961608 (Version 2)
Quarter: 2019Q4

REPORT INFORMATION
  Report Type: Report from Study
  Country: BE (occurrence: BE)
  Receive Date: 20191025
  Receipt Date: 20191107
  Transmission Date: 20200122
  Serious: Yes (Hospitalization)
  Sender: FDA-Public Use
  Company Number: BE-PFIZER INC-2019459910

PATIENT
  Age: 72 Year
  Sex: Female
  Weight: 43 kg

DRUGS (4)
  1. METHYLPREDNISOLONE. [Suspect]
     Active Substance: METHYLPREDNISOLONE
     Indication: RHEUMATOID ARTHRITIS
     Dosage: 1X/DAY
     Route: 048
     Dates: start: 20180212
  2. METHOTREXATE. [Concomitant]
     Active Substance: METHOTREXATE
     Dosage: UNK
     Route: 048
     Dates: start: 20170125, end: 20170410
  3. TOCILIZUMAB. [Suspect]
     Active Substance: TOCILIZUMAB
     Indication: RHEUMATOID ARTHRITIS
     Dosage: 162 MG, WEEKLY
     Route: 058
     Dates: start: 20180723, end: 201905
  4. METHOTREXATE. [Concomitant]
     Active Substance: METHOTREXATE
     Indication: RHEUMATOID ARTHRITIS
     Dosage: UNK
     Route: 048
     Dates: start: 20170703

REACTIONS (2)
  - Endometrial cancer [Recovering/Resolving]
  - Hepatic function abnormal [Recovering/Resolving]

NARRATIVE: CASE EVENT DATE: 20181116
